FAERS Safety Report 7055372-9 (Version None)
Quarter: 2010Q4

REPORT INFORMATION
  Report Type: 
  Country: None (occurrence: None)
  Receive Date: 20101021
  Receipt Date: 20101006
  Transmission Date: 20110411
  Serious: Yes (Hospitalization, Other)
  Sender: FDA-Public Use
  Company Number: PHHY2010JP58076

PATIENT
  Sex: Male
  Weight: 65 kg

DRUGS (9)
  1. NEORAL [Suspect]
     Indication: HISTIOCYTOSIS HAEMATOPHAGIC
     Dosage: 300 MG DAILY
     Route: 048
     Dates: start: 20100713, end: 20100721
  2. NEORAL [Suspect]
     Dosage: 200 MG DAILY
     Route: 048
     Dates: start: 20100722, end: 20100803
  3. NEORAL [Suspect]
     Dosage: 100 MG DAILY
     Route: 048
     Dates: start: 20100805, end: 20100811
  4. DECADRON [Suspect]
     Indication: HISTIOCYTOSIS HAEMATOPHAGIC
     Dosage: 16 MG DAILY
     Route: 042
     Dates: start: 20100713, end: 20100716
  5. DECADRON [Suspect]
     Dosage: 16 MG DAILY
     Route: 048
     Dates: start: 20100717, end: 20100726
  6. DECADRON [Suspect]
     Dosage: 8 MG DAILY
     Route: 048
     Dates: start: 20100727, end: 20100809
  7. TAKEPRON [Concomitant]
     Indication: GASTRIC ULCER
     Dosage: 15 MG
     Route: 048
     Dates: start: 20100713
  8. AMLODIPINE BESYLATE [Concomitant]
     Indication: HYPERTENSION
     Dosage: 5 MG
     Route: 048
     Dates: start: 20100724, end: 20100803
  9. MICARDIS [Concomitant]
     Indication: HYPERTENSION
     Dosage: 40 MG
     Route: 048
     Dates: start: 20100728, end: 20100803

REACTIONS (10)
  - ALTERED STATE OF CONSCIOUSNESS [None]
  - ATONIC SEIZURES [None]
  - BLOOD PRESSURE SYSTOLIC INCREASED [None]
  - CEREBRAL ISCHAEMIA [None]
  - DEPRESSED LEVEL OF CONSCIOUSNESS [None]
  - HEADACHE [None]
  - HYPERTENSION [None]
  - HYPOKINESIA [None]
  - IMMUNOSUPPRESSANT DRUG LEVEL INCREASED [None]
  - LOSS OF CONSCIOUSNESS [None]
